FAERS Safety Report 9221717 (Version 1)
Quarter: 2013Q1

REPORT INFORMATION
  Report Type: Spontaneous
  Country: US (occurrence: None)
  Receive Date: 20120907
  Receipt Date: 20120907
  Transmission Date: 20140127
  Serious: Yes (Life-Threatening, Hospitalization)
  Sender: FDA-Public Use
  Company Number: TH-2012-00204

PATIENT
  Age: 52 Year
  Sex: Male

DRUGS (6)
  1. EGRIFTA [Suspect]
     Indication: LIPODYSTROPHY ACQUIRED
     Dates: start: 201101
  2. SEROSTIM [Suspect]
     Dates: start: 201201
  3. BABY ASPIRIN (ACETYLSALICYLIC ACID) [Concomitant]
  4. TESTIM (TESTOSTERONE) [Concomitant]
  5. EPIDURAL [Concomitant]
  6. ALEVE (NAPROXEN SODIUM) [Concomitant]

REACTIONS (5)
  - Respiratory failure [None]
  - Dieulafoy^s vascular malformation [None]
  - Malformation venous [None]
  - Iron deficiency anaemia [None]
  - Carpal tunnel syndrome [None]
